FAERS Safety Report 10415881 (Version 1)
Quarter: 2014Q3

REPORT INFORMATION
  Report Type: Spontaneous
  Country: DE (occurrence: None)
  Receive Date: 20140826
  Receipt Date: 20140826
  Transmission Date: 20150326
  Serious: Yes (Other)
  Sender: FDA-Public Use
  Company Number: 2500198

PATIENT
  Age: 3 Year
  Sex: Female
  Weight: 15 kg

DRUGS (6)
  1. DOBUTAMINE [Concomitant]
     Active Substance: DOBUTAMINE\DOBUTAMINE HYDROCHLORIDE
  2. PROPOFOL. [Suspect]
     Active Substance: PROPOFOL
     Indication: SEDATION
     Dosage: AVERAGE DOSING 3-4 MG/KG PER H
     Route: 041
     Dates: start: 20140711, end: 20140720
  3. KETAMINE [Concomitant]
     Active Substance: KETAMINE
  4. MIDAZOLAM [Concomitant]
     Active Substance: MIDAZOLAM\MIDAZOLAM HYDROCHLORIDE
  5. SUFENTANIL [Concomitant]
     Active Substance: SUFENTANIL
  6. NORADRENALIN [Concomitant]
     Active Substance: NOREPINEPHRINE\NOREPINEPHRINE BITARTRATE

REACTIONS (2)
  - Rhabdomyolysis [None]
  - Hepatic enzyme increased [None]

NARRATIVE: CASE EVENT DATE: 20140720
